FAERS Safety Report 8266605-5 (Version None)
Quarter: 2012Q2

REPORT INFORMATION
  Report Type: 
  Country: None (occurrence: None)
  Receive Date: 20120406
  Receipt Date: 20120326
  Transmission Date: 20120825
  Serious: Yes (Other)
  Sender: FDA-Public Use
  Company Number: DE-BAXTER-2012BH006654

PATIENT
  Sex: Male
  Weight: 85 kg

DRUGS (2)
  1. DIANEAL PD1 GLUCOSE 1.36 % W/V [Suspect]
     Indication: PERITONEAL DIALYSIS
     Route: 033
     Dates: start: 20101201
  2. EXTRANEAL [Suspect]
     Indication: PERITONEAL DIALYSIS
     Route: 033
     Dates: start: 20101201

REACTIONS (2)
  - PERITONITIS BACTERIAL [None]
  - PYREXIA [None]
